FAERS Safety Report 6836147-X (Version None)
Quarter: 2010Q3

REPORT INFORMATION
  Report Type: 
  Country: None (occurrence: None)
  Receive Date: 20100713
  Receipt Date: 20100702
  Transmission Date: 20110219
  Serious: Yes (Hospitalization)
  Sender: FDA-Public Use
  Company Number: JP-ROCHE-713989

PATIENT
  Sex: Female
  Weight: 35 kg

DRUGS (18)
  1. TOCILIZUMAB [Suspect]
     Indication: RHEUMATOID ARTHRITIS
     Route: 041
     Dates: start: 20091027, end: 20091027
  2. TOCILIZUMAB [Suspect]
     Route: 041
     Dates: start: 20091202, end: 20091202
  3. TOCILIZUMAB [Suspect]
     Route: 041
     Dates: start: 20100104, end: 20100104
  4. TOCILIZUMAB [Suspect]
     Route: 041
     Dates: start: 20100216, end: 20100216
  5. TOCILIZUMAB [Suspect]
     Route: 041
     Dates: start: 20100312, end: 20100312
  6. TOCILIZUMAB [Suspect]
     Route: 041
     Dates: start: 20100409, end: 20100409
  7. TOCILIZUMAB [Suspect]
     Route: 041
     Dates: start: 20100507
  8. RHEUMATREX [Concomitant]
     Route: 048
     Dates: end: 20091228
  9. ISCOTIN [Concomitant]
     Route: 048
  10. PREDNISOLONE [Concomitant]
     Route: 048
     Dates: end: 20091228
  11. PREDNISOLONE [Concomitant]
     Route: 048
     Dates: start: 20091229, end: 20100104
  12. PREDNISOLONE [Concomitant]
     Route: 048
     Dates: start: 20100105, end: 20100216
  13. PREDNISOLONE [Concomitant]
     Route: 048
     Dates: start: 20100217, end: 20100312
  14. PREDNISOLONE [Concomitant]
     Route: 048
     Dates: start: 20100313
  15. OMEPRAL [Concomitant]
     Route: 048
  16. FOLIAMIN [Concomitant]
     Route: 048
  17. TALION [Concomitant]
     Route: 048
  18. CELECOXIB [Concomitant]
     Route: 048

REACTIONS (2)
  - DERMATITIS ALLERGIC [None]
  - SPINAL COMPRESSION FRACTURE [None]
